FAERS Safety Report 4700573-5 (Version None)
Quarter: 2005Q2

REPORT INFORMATION
  Report Type: 
  Country: None (occurrence: None)
  Receive Date: 20050627
  Receipt Date: 20050613
  Transmission Date: 20051028
  Serious: Yes (Hospitalization)
  Sender: FDA-Public Use
  Company Number: HQWYE529811JAN05

PATIENT
  Age: 91 Year
  Sex: Male

DRUGS (9)
  1. CORDARONE [Suspect]
     Indication: ATRIAL FIBRILLATION
     Dosage: 100 MG 1X PER 1 DAY ORAL
     Route: 048
     Dates: start: 20020615
  2. CORDARONE [Suspect]
     Indication: ATRIAL FLUTTER
     Dosage: 100 MG 1X PER 1 DAY ORAL
     Route: 048
     Dates: start: 20020615
  3. PREVISCAN (FLUINDIONE) [Concomitant]
  4. BUMETANIDE [Concomitant]
  5. VASTAREL (TRIAMETAZIDINE HYDROCHLORIDE) [Concomitant]
  6. AMARYL [Concomitant]
  7. RAMIPRIL [Concomitant]
  8. ALLOPURINOL [Concomitant]
  9. LERCANIDIPINE [Concomitant]

REACTIONS (23)
  - ACUTE MYOCARDIAL INFARCTION [None]
  - ALANINE AMINOTRANSFERASE INCREASED [None]
  - ANOREXIA [None]
  - ASPARTATE AMINOTRANSFERASE INCREASED [None]
  - BRONCHIAL INFECTION [None]
  - BUNDLE BRANCH BLOCK LEFT [None]
  - CONDITION AGGRAVATED [None]
  - DEHYDRATION [None]
  - DIABETES MELLITUS INADEQUATE CONTROL [None]
  - DIABETIC COMPLICATION [None]
  - DRUG INEFFECTIVE [None]
  - GASTROINTESTINAL DISORDER [None]
  - GENERAL PHYSICAL HEALTH DETERIORATION [None]
  - HEART RATE INCREASED [None]
  - HEPATITIS C POSITIVE [None]
  - INTERNATIONAL NORMALISED RATIO INCREASED [None]
  - MALAISE [None]
  - OVERDOSE [None]
  - PNEUMONITIS [None]
  - RENAL FAILURE [None]
  - RESPIRATORY FAILURE [None]
  - SHOCK [None]
  - VENTRICULAR DYSFUNCTION [None]
